FAERS Safety Report 11872225 (Version 2)
Quarter: 2016Q1

REPORT INFORMATION
  Report Type: Report from Study
  Country: JP (occurrence: JP)
  Receive Date: 20151228
  Receipt Date: 20160201
  Transmission Date: 20160526
  Serious: Yes (Death)
  Sender: FDA-Public Use
  Company Number: JP-NAPPMUNDI-GBR-2015-0032966

PATIENT
  Age: 88 Year
  Sex: Female
  Weight: 31 kg

DRUGS (7)
  1. VOLTAREN [Concomitant]
     Active Substance: DICLOFENAC SODIUM
     Indication: OSTEOARTHRITIS
     Dosage: 50 MG, 3-4 TIMES/WEEK
     Route: 054
     Dates: end: 20150210
  2. BTDS 5 MG [Suspect]
     Active Substance: BUPRENORPHINE
     Indication: ANALGESIC THERAPY
     Dosage: 5 MCG, Q1H
     Route: 062
     Dates: start: 20140524, end: 20150210
  3. BLOPRESS [Concomitant]
     Active Substance: CANDESARTAN CILEXETIL
     Indication: HYPERTENSION
     Dosage: 12 MG, DAILY
     Route: 048
     Dates: end: 20150210
  4. FRANDOL [Concomitant]
     Active Substance: ISOSORBIDE DINITRATE
     Indication: ANGINA PECTORIS
     Dosage: 40 MG, DAILY
     Route: 061
     Dates: end: 20150210
  5. VOLTAREN [Concomitant]
     Active Substance: DICLOFENAC SODIUM
     Indication: OSTEOARTHRITIS
  6. NORVASC [Concomitant]
     Active Substance: AMLODIPINE BESYLATE
     Indication: HYPERTENSION
     Dosage: 10 MG, DAILY
     Route: 048
     Dates: end: 20150210
  7. NEXIUM [Concomitant]
     Active Substance: ESOMEPRAZOLE MAGNESIUM
     Indication: GASTROOESOPHAGEAL REFLUX DISEASE
     Dosage: 10 MG, DAILY
     Route: 048
     Dates: end: 20150210

REACTIONS (1)
  - Death [Fatal]

NARRATIVE: CASE EVENT DATE: 20150210
